FAERS Safety Report 16834141 (Version 2)
Quarter: 2019Q3

REPORT INFORMATION
  Report Type: Spontaneous
  Country: US (occurrence: US)
  Receive Date: 20190920
  Receipt Date: 20190925
  Transmission Date: 20191005
  Serious: Yes (Other)
  Sender: FDA-Public Use
  Company Number: US-PFIZER INC-2019405718

PATIENT
  Age: 72 Year
  Sex: Female
  Weight: 47.62 kg

DRUGS (2)
  1. IBRANCE [Suspect]
     Active Substance: PALBOCICLIB
     Indication: BREAST CANCER FEMALE
     Dosage: 125 MG, UNK
  2. IBRANCE [Suspect]
     Active Substance: PALBOCICLIB
     Dosage: 100 MG, CYCLIC [100 MG ONCE A DAY FOR 21 DAYS]
     Dates: start: 2019, end: 20190828

REACTIONS (3)
  - White blood cell count decreased [Recovering/Resolving]
  - Malaise [Unknown]
  - Pneumonia [Unknown]

NARRATIVE: CASE EVENT DATE: 20190917
